FAERS Safety Report 20705177 (Version 1)
Quarter: 2022Q2

REPORT INFORMATION
  Report Type: Spontaneous
  Country: US (occurrence: US)
  Receive Date: 20220413
  Receipt Date: 20220413
  Transmission Date: 20220720
  Serious: Yes (Hospitalization, Other)
  Sender: FDA-Public Use
  Company Number: US-JNJFOC-20220406679

PATIENT
  Sex: Male

DRUGS (2)
  1. TITANIUM DIOXIDE\ZINC OXIDE [Suspect]
     Active Substance: TITANIUM DIOXIDE\ZINC OXIDE
     Indication: Product used for unknown indication
     Route: 061
  2. AVOBENZONE\HOMOSALATE\OCTISALATE\OCTOCRYLENE\OXYBENZONE [Suspect]
     Active Substance: AVOBENZONE\HOMOSALATE\OCTISALATE\OCTOCRYLENE\OXYBENZONE
     Indication: Product used for unknown indication
     Route: 061

REACTIONS (2)
  - Philadelphia positive acute lymphocytic leukaemia [Unknown]
  - Exposure to toxic agent [Unknown]

NARRATIVE: CASE EVENT DATE: 20200501
